FAERS Safety Report 4701000-4 (Version None)
Quarter: 2005Q2

REPORT INFORMATION
  Report Type: 
  Country: None (occurrence: None)
  Receive Date: 20050628
  Receipt Date: 20050606
  Transmission Date: 20051028
  Serious: Yes (Other)
  Sender: FDA-Public Use
  Company Number: DE-BRISTOL-MYERS SQUIBB COMPANY-12994570

PATIENT
  Age: 75 Year
  Sex: Female

DRUGS (4)
  1. KARVEA [Suspect]
     Indication: HYPERTENSION
     Dates: start: 20050530, end: 20050603
  2. METOPROLOL [Concomitant]
     Dosage: FOR YEARS
  3. L-THYROXINE [Concomitant]
     Dosage: FOR YEARS
  4. SIMVASTATIN [Concomitant]
     Dosage: FOR YEARS

REACTIONS (1)
  - RHABDOMYOLYSIS [None]
